FAERS Safety Report 8256627-2 (Version None)
Quarter: 2012Q2

REPORT INFORMATION
  Report Type: 
  Country: None (occurrence: None)
  Receive Date: 20120403
  Receipt Date: 20120330
  Transmission Date: 20120825
  Serious: No
  Sender: FDA-Public Use
  Company Number: US-TEVA-331273USA

PATIENT
  Sex: Female

DRUGS (1)
  1. PLAN B ONE-STEP [Suspect]
     Indication: POST COITAL CONTRACEPTION
     Dosage: 1.5 MILLIGRAM;
     Route: 048
     Dates: start: 20120305, end: 20120305

REACTIONS (5)
  - ABDOMINAL DISTENSION [None]
  - BREAST TENDERNESS [None]
  - MENSTRUATION IRREGULAR [None]
  - INCREASED APPETITE [None]
  - ACNE [None]
